FAERS Safety Report 8560277-8 (Version None)
Quarter: 2012Q3

REPORT INFORMATION
  Report Type: 
  Country: None (occurrence: None)
  Receive Date: 20120727
  Receipt Date: 20120727
  Transmission Date: 20120928
  Serious: Yes (Hospitalization)
  Sender: FDA-Public Use
  Company Number: None

PATIENT
  Age: 87 Year
  Sex: Female
  Weight: 75 kg

DRUGS (8)
  1. LASIX [Concomitant]
  2. COREG [Concomitant]
  3. KLONOPIN [Concomitant]
  4. AZITHROMYCIN [Concomitant]
  5. METHIMAZOLE [Concomitant]
  6. AMLODIPINE [Concomitant]
  7. LOTREL [Suspect]
     Indication: HYPERTENSION
     Dosage: 5MG/10MG DAILY PO CHRONIC
     Route: 048
  8. SYMBYAX [Concomitant]

REACTIONS (1)
  - SWOLLEN TONGUE [None]
